FAERS Safety Report 9567479 (Version 1)
Quarter: 2013Q3

REPORT INFORMATION
  Report Type: Spontaneous
  Country: US (occurrence: US)
  Receive Date: 20130930
  Receipt Date: 20130930
  Transmission Date: 20140515
  Serious: Yes (Other)
  Sender: FDA-Public Use
  Company Number: US-AMGEN-USASP2013006740

PATIENT
  Age: 52 Year
  Sex: Male
  Weight: 204.8 kg

DRUGS (8)
  1. ENBREL [Suspect]
     Indication: PSORIASIS
     Dosage: 50 MG, 2 TIMES/WK
     Route: 058
     Dates: start: 2004
  2. LIPITOR [Concomitant]
     Dosage: 20 MG, UNK
     Route: 048
  3. LANTUS [Concomitant]
     Dosage: 100 /ML, UNK
     Route: 058
  4. METOPROLOL TARTRATE [Concomitant]
     Dosage: 100 MG, UNK
     Route: 048
  5. PROZAC [Concomitant]
     Dosage: 20 MG, UNK
     Route: 048
  6. ACTOS [Concomitant]
     Dosage: 15 MG, UNK
     Route: 048
  7. BABY ASPIRIN [Concomitant]
     Dosage: 81 MG, UNK
     Route: 048
  8. RAPTIVA [Concomitant]
     Dosage: UNK

REACTIONS (2)
  - Cellulitis [Recovered/Resolved]
  - Drug ineffective [Unknown]
